FAERS Safety Report 9271493 (Version 2)
Quarter: 2014Q1

REPORT INFORMATION
  Report Type: Spontaneous
  Country: US (occurrence: US)
  Receive Date: 20130506
  Receipt Date: 20140312
  Transmission Date: 20141002
  Serious: Yes (Other)
  Sender: FDA-Public Use
  Company Number: US-009507513-1305USA000787

PATIENT
  Sex: Male
  Weight: 74.83 kg

DRUGS (2)
  1. PROPECIA [Suspect]
     Indication: ALOPECIA
     Dosage: 1 MG, QD
     Route: 048
     Dates: start: 20060131, end: 20060324
  2. FLONASE [Concomitant]
     Indication: RHINITIS ALLERGIC
     Dosage: 50 MICROGRAM, 2 PUFFS EACH NOSTRIL QD
     Route: 045

REACTIONS (11)
  - Abdominal operation [Unknown]
  - Upper respiratory tract infection [Unknown]
  - Contusion [Unknown]
  - Anxiety [Unknown]
  - Polydipsia [Unknown]
  - Blood testosterone increased [Unknown]
  - Nocturia [Unknown]
  - Pollakiuria [Unknown]
  - Prostatism [Unknown]
  - Erectile dysfunction [Not Recovered/Not Resolved]
  - Sexual dysfunction [Not Recovered/Not Resolved]
